FAERS Safety Report 5143968-0 (Version None)
Quarter: 2006Q4

REPORT INFORMATION
  Report Type: 
  Country: None (occurrence: None)
  Receive Date: 20061106
  Receipt Date: 20061027
  Transmission Date: 20070319
  Serious: Yes (Hospitalization)
  Sender: FDA-Public Use
  Company Number: FR-AVENTIS-200613786FR

PATIENT
  Age: 50 Year
  Sex: Male

DRUGS (1)
  1. RIMIFON [Suspect]
     Indication: RENAL TUBERCULOSIS
     Route: 048
     Dates: start: 20060101

REACTIONS (2)
  - HYPOACUSIS [None]
  - VISUAL DISTURBANCE [None]
